FAERS Safety Report 17447576 (Version 2)
Quarter: 2020Q2

REPORT INFORMATION
  Report Type: Spontaneous
  Country: BR (occurrence: BR)
  Receive Date: 20200221
  Receipt Date: 20200401
  Transmission Date: 20200713
  Serious: No
  Sender: FDA-Public Use
  Company Number: BR-BRISTOL-MYERS SQUIBB COMPANY-BMS-2019-098104

PATIENT
  Sex: Male
  Weight: 75 kg

DRUGS (6)
  1. METHOTREXATE. [Concomitant]
     Active Substance: METHOTREXATE
     Indication: PRODUCT USED FOR UNKNOWN INDICATION
     Dosage: 2.5 MILLIGRAM-3 TABLETS ONCE WEEKLY
     Route: 065
  2. FOLIC ACID. [Concomitant]
     Active Substance: FOLIC ACID
     Indication: PRODUCT USED FOR UNKNOWN INDICATION
     Dosage: 1 DAY AFTER METHOTREXATE
     Route: 065
  3. CINETOL [CARBIDOPA;LEVODOPA] [Concomitant]
     Indication: PRODUCT USED FOR UNKNOWN INDICATION
     Dosage: 2 MILLIGRAM
     Route: 065
  4. OLANZAPINE. [Concomitant]
     Active Substance: OLANZAPINE
     Indication: SCHIZOPHRENIA
     Dosage: 10 MILLIGRAM- 1 EVERY DAY AT NIGHT
     Route: 048
  5. ORENCIA [Suspect]
     Active Substance: ABATACEPT
     Indication: RHEUMATOID ARTHRITIS
     Dosage: 125 MILLIGRAM, QWK
     Route: 058
     Dates: start: 201909
  6. RIVOTRIL [Concomitant]
     Active Substance: CLONAZEPAM
     Indication: PRODUCT USED FOR UNKNOWN INDICATION
     Dosage: 2 MILLIGRAM- 1 EVERY DAY AT NIGHT
     Route: 048

REACTIONS (12)
  - Pain in extremity [Unknown]
  - Myalgia [Unknown]
  - Skin discolouration [Recovering/Resolving]
  - Musculoskeletal pain [Unknown]
  - Nasopharyngitis [Recovering/Resolving]
  - Chills [Recovering/Resolving]
  - Asthenia [Unknown]
  - Joint swelling [Unknown]
  - Pain in jaw [Unknown]
  - Facial pain [Unknown]
  - Feeling hot [Unknown]
  - Feeling abnormal [Not Recovered/Not Resolved]
